FAERS Safety Report 16857536 (Version 2)
Quarter: 2019Q4

REPORT INFORMATION
  Report Type: Spontaneous
  Country: US (occurrence: US)
  Receive Date: 20190926
  Receipt Date: 20191111
  Transmission Date: 20200122
  Serious: Yes (Death)
  Sender: FDA-Public Use
  Company Number: US-PFIZER INC-2019357860

PATIENT
  Age: 80 Year
  Sex: Male
  Weight: 104.3 kg

DRUGS (3)
  1. XALKORI [Suspect]
     Active Substance: CRIZOTINIB
     Dosage: 20 MG, 2X/DAY
     Dates: start: 201808, end: 201909
  2. XALKORI [Suspect]
     Active Substance: CRIZOTINIB
     Indication: LUNG NEOPLASM MALIGNANT
     Dosage: 500 MG, ALTERNATE DAY (250 MG BID ALT 250 MG ONCE DAILY)
  3. XALKORI [Suspect]
     Active Substance: CRIZOTINIB
     Dosage: 250 MG, ALTERNATE DAY [1 FOR 1 DAY AND THEN 2 THE NEXT DAY]
     Route: 048
     Dates: start: 2018

REACTIONS (1)
  - Cardiac failure congestive [Fatal]

NARRATIVE: CASE EVENT DATE: 201808
